FAERS Safety Report 22145466 (Version 1)
Quarter: 2023Q1

REPORT INFORMATION
  Report Type: Report from Study
  Country: GR (occurrence: GR)
  Receive Date: 20230328
  Receipt Date: 20230328
  Transmission Date: 20230418
  Serious: Yes (Death, Life-Threatening, Hospitalization, Other)
  Sender: FDA-Public Use
  Company Number: GR-ABBVIE-4706612

PATIENT
  Age: 77 Year
  Sex: Male
  Weight: 61 kg

DRUGS (1)
  1. VENETOCLAX [Suspect]
     Active Substance: VENETOCLAX
     Indication: Acute myeloid leukaemia
     Route: 048
     Dates: start: 20200910, end: 20201003

REACTIONS (2)
  - Febrile neutropenia [Fatal]
  - Pseudomonal bacteraemia [Not Recovered/Not Resolved]

NARRATIVE: CASE EVENT DATE: 20201003
